FAERS Safety Report 16057190 (Version 1)
Quarter: 2019Q1

REPORT INFORMATION
  Report Type: Report from Study
  Country: US (occurrence: US)
  Receive Date: 20190311
  Receipt Date: 20190311
  Transmission Date: 20190418
  Serious: Yes (Disabling, Other)
  Sender: FDA-Public Use
  Company Number: US-BAYER-2019-043390

PATIENT
  Age: 62 Year
  Sex: Male

DRUGS (1)
  1. STIVARGA [Suspect]
     Active Substance: REGORAFENIB
     Indication: COLORECTAL CANCER
     Dosage: 120 MG DAILY (ON DAYS 1 TO 21 OF EVERY 28 DAY CYCLE)
     Route: 048

REACTIONS (9)
  - Decubitus ulcer [None]
  - Pain in extremity [Unknown]
  - Mobility decreased [Unknown]
  - Food intolerance [Unknown]
  - Weight decreased [None]
  - Pain in extremity [Unknown]
  - Oral pain [Unknown]
  - Haemorrhage [None]
  - Off label use [None]

NARRATIVE: CASE EVENT DATE: 20190225
